FAERS Safety Report 9372594 (Version 1)
Quarter: 2013Q2

REPORT INFORMATION
  Report Type: Spontaneous
  Country: US (occurrence: US)
  Receive Date: 20130627
  Receipt Date: 20130627
  Transmission Date: 20140414
  Serious: Yes (Other)
  Sender: FDA-Public Use
  Company Number: US-TEVA-414887USA

PATIENT
  Age: 50 Year
  Sex: Male

DRUGS (2)
  1. NUVIGIL [Suspect]
  2. OPIOID [Suspect]

REACTIONS (4)
  - Psychotic disorder [Unknown]
  - Mania [Unknown]
  - Delusion [Unknown]
  - Drug screen false positive [Unknown]
